FAERS Safety Report 24059678 (Version 4)
Quarter: 2024Q3

REPORT INFORMATION
  Report Type: Spontaneous
  Country: FR (occurrence: FR)
  Receive Date: 20240708
  Receipt Date: 20240821
  Transmission Date: 20241016
  Serious: Yes (Other)
  Sender: NOVARTIS
  Company Number: FR-002147023-NVSC2024FR140153

PATIENT
  Age: 18 Year
  Sex: Male

DRUGS (4)
  1. MEKINIST [Suspect]
     Active Substance: TRAMETINIB DIMETHYL SULFOXIDE
     Indication: Brain neoplasm
     Dosage: 2 MG
     Route: 065
     Dates: start: 202403, end: 202404
  2. MEKINIST [Suspect]
     Active Substance: TRAMETINIB DIMETHYL SULFOXIDE
     Dosage: 1.5 MG, QD
     Route: 065
     Dates: start: 202405
  3. MEKINIST [Suspect]
     Active Substance: TRAMETINIB DIMETHYL SULFOXIDE
     Dosage: 0.5 MG (0.5MG TABLETS X 30 IN MULTI-DOSE VIAL)
     Route: 065
     Dates: start: 20240701, end: 20240703
  4. TAFINLAR [Suspect]
     Active Substance: DABRAFENIB MESYLATE
     Indication: Brain neoplasm
     Dosage: 50 MG
     Route: 065

REACTIONS (3)
  - Epilepsy [Unknown]
  - Product colour issue [Unknown]
  - Off label use [Unknown]
